FAERS Safety Report 8294794-5 (Version None)
Quarter: 2012Q2

REPORT INFORMATION
  Report Type: 
  Country: None (occurrence: None)
  Receive Date: 20120418
  Receipt Date: 20120413
  Transmission Date: 20120825
  Serious: Yes (Other)
  Sender: FDA-Public Use
  Company Number: PHHY2012CA013363

PATIENT
  Sex: Male

DRUGS (8)
  1. ASPIRIN [Concomitant]
     Dosage: 81 MEQ/KG, QD
  2. RASILEZ [Suspect]
     Indication: HYPERTENSION
     Dosage: 150 MG, QD
     Route: 048
     Dates: start: 20100201, end: 20120101
  3. NORVASC [Concomitant]
  4. ALLOPURINOL [Concomitant]
     Dosage: 300 MG, QD
  5. HYDRODIURIL [Concomitant]
     Dosage: 25 MG
  6. VITAMIN D [Concomitant]
     Dosage: 10000 IU, UNK
  7. ZESTRIL [Concomitant]
  8. CRESTOR [Concomitant]
     Dosage: 5 MG, QD

REACTIONS (4)
  - LUNG NEOPLASM [None]
  - RENAL NEOPLASM [None]
  - METASTASES TO KIDNEY [None]
  - BONE NEOPLASM [None]
